FAERS Safety Report 4372888-4 (Version None)
Quarter: 2004Q2

REPORT INFORMATION
  Report Type: 
  Country: None (occurrence: None)
  Receive Date: 20040603
  Receipt Date: 20040318
  Transmission Date: 20050107
  Serious: Yes (Death, Hospitalization)
  Sender: FDA-Public Use
  Company Number: F01200400572

PATIENT
  Age: 60 Year
  Sex: Female

DRUGS (4)
  1. OXALIPLATIN- SOLUTION -85 MG/M2 [Suspect]
     Indication: PREOPERATIVE CARE
     Dosage: SEE IMAGE
     Route: 042
     Dates: start: 20040308, end: 20040308
  2. OXALIPLATIN- SOLUTION -85 MG/M2 [Suspect]
     Indication: RECTAL CANCER
     Dosage: SEE IMAGE
     Route: 042
     Dates: start: 20040308, end: 20040308
  3. UFT- (TEGAFUR URACIL) - FORM: UNKNOWN- MG/M2 [Suspect]
     Dosage: D18-12, D15-29, D22-26, D29-33, ORAL
     Route: 048
     Dates: end: 20040315
  4. INSULIN [Concomitant]

REACTIONS (8)
  - ANOREXIA [None]
  - ASTHENIA [None]
  - BONE MARROW DEPRESSION [None]
  - DIABETES MELLITUS INADEQUATE CONTROL [None]
  - DIARRHOEA [None]
  - FUNGAEMIA [None]
  - METABOLIC ACIDOSIS [None]
  - RECTAL TENESMUS [None]
